FAERS Safety Report 8966218 (Version 2)
Quarter: 2012Q4

REPORT INFORMATION
  Report Type: Report from Study
  Country: GB (occurrence: GB)
  Receive Date: 20121214
  Receipt Date: 20121221
  Transmission Date: 20130627
  Serious: Yes (Death)
  Sender: FDA-Public Use
  Company Number: GB-GENZYME-MOZO-1000792

PATIENT
  Age: 64 Year
  Sex: Female
  Weight: 65.4 kg

DRUGS (3)
  1. MOZOBIL [Suspect]
     Indication: HAEMATOPOIETIC STEM CELL MOBILISATION
     Dosage: 16 mg, qd
     Route: 058
     Dates: start: 20120130, end: 20120201
  2. MOZOBIL [Suspect]
     Indication: B-CELL LYMPHOMA
  3. LENALIDEMIDE [Concomitant]
     Indication: PRODUCT USED FOR UNKNOWN INDICATION
     Dosage: UNK
     Route: 065
     Dates: start: 201204

REACTIONS (2)
  - B-cell lymphoma [Fatal]
  - B-cell lymphoma [Fatal]
